FAERS Safety Report 9208789 (Version 1)
Quarter: 2013Q2

REPORT INFORMATION
  Report Type: Spontaneous
  Country: US (occurrence: US)
  Receive Date: 20130404
  Receipt Date: 20130404
  Transmission Date: 20140414
  Serious: No
  Sender: FDA-Public Use
  Company Number: US-PFIZER INC-2013102177

PATIENT
  Age: 47 Year
  Sex: Female
  Weight: 68.03 kg

DRUGS (2)
  1. MECLOZINE HCL [Suspect]
     Dosage: UNK
     Route: 048
     Dates: end: 201301
  2. MECLOZINE HCL [Suspect]
     Dosage: UNK
     Dates: end: 201301

REACTIONS (1)
  - Drug ineffective [Unknown]
